FAERS Safety Report 8613553-4 (Version None)
Quarter: 2012Q3

REPORT INFORMATION
  Report Type: 
  Country: None (occurrence: None)
  Receive Date: 20120823
  Receipt Date: 20120808
  Transmission Date: 20120928
  Serious: Yes (Hospitalization, Other)
  Sender: FDA-Public Use
  Company Number: JP-009507513-2012SP035002

PATIENT

DRUGS (14)
  1. REBETOL [Suspect]
     Indication: HEPATITIS C
     Dosage: 600 MG, QD
     Route: 048
     Dates: start: 20120411, end: 20120425
  2. TELAVIC [Suspect]
     Indication: HEPATITIS C
     Dosage: 2250 MG, QD
     Route: 048
     Dates: start: 20120411
  3. NEOMALLERMIN TR [Concomitant]
     Indication: PRODUCT USED FOR UNKNOWN INDICATION
     Dosage: DRUG FORM: UNKNOWN
     Route: 048
     Dates: start: 20120413
  4. REBETOL [Suspect]
     Dosage: 200 MG, QD
     Route: 048
     Dates: start: 20120426
  5. CEPHARANTHINE [Concomitant]
     Indication: ALOPECIA AREATA
     Dosage: 4 MG, QD
     Route: 048
  6. OLOPATADINE HCL [Concomitant]
     Indication: PRODUCT USED FOR UNKNOWN INDICATION
     Dosage: DRUG FORM: UNKNOWN
     Route: 048
     Dates: start: 20120413
  7. ASCORBIC ACID (+) VITAMIN B (UNSPECIFIED) [Concomitant]
     Indication: PRODUCT USED FOR UNKNOWN INDICATION
     Dosage: DRUG FORM: UNKNOWN
     Route: 048
     Dates: start: 20120419
  8. ELOCON [Concomitant]
     Indication: PRODUCT USED FOR UNKNOWN INDICATION
     Dosage: DOSE: UNKNOWN
     Route: 061
     Dates: start: 20120413
  9. ATARAX [Concomitant]
     Indication: PRODUCT USED FOR UNKNOWN INDICATION
     Dosage: DRUG FORM: UNKNOWN
     Route: 048
     Dates: start: 20120416
  10. LOCOID [Concomitant]
     Indication: PRODUCT USED FOR UNKNOWN INDICATION
     Dosage: DOSE: UNKNOWN
     Route: 065
     Dates: start: 20120423
  11. ALLOPURINOL [Concomitant]
     Indication: HYPERURICAEMIA
     Dosage: UNK UNK, UNKNOWN
     Route: 065
     Dates: start: 20120530
  12. EURAX [Concomitant]
     Indication: PRODUCT USED FOR UNKNOWN INDICATION
     Dosage: DOSE: UNKNOWN
     Route: 061
     Dates: start: 20120413
  13. PEGINTERFERON ALFA-2B [Suspect]
     Indication: HEPATITIS C
     Dosage: 1.38 ?G/KG, QW
     Route: 058
     Dates: start: 20120411
  14. LEVOTHYROXINE SODIUM [Concomitant]
     Indication: HYPOTHYROIDISM
     Dosage: 100 MICROGRAM, QD
     Route: 048

REACTIONS (1)
  - TOXIC SKIN ERUPTION [None]
